FAERS Safety Report 8791445 (Version 1)
Quarter: 2012Q4

REPORT INFORMATION
  Report Type: Spontaneous
  Country: JP (occurrence: None)
  Receive Date: 20120912
  Receipt Date: 20120912
  Transmission Date: 20130627
  Serious: Yes (Hospitalization, Other)
  Sender: FDA-Public Use
  Company Number: 2012MA010704

PATIENT
  Age: 63 Year
  Sex: Male

DRUGS (1)
  1. TRIAMCINOLONE ACETONIDE [Suspect]
     Indication: RETINAL VEIN BRANCH OCCLUSION
     Route: 031
     Dates: start: 20041121, end: 20041121

REACTIONS (2)
  - Cytomegalovirus chorioretinitis [None]
  - Cataract operation [None]
